FAERS Safety Report 12851185 (Version 5)
Quarter: 2017Q2

REPORT INFORMATION
  Report Type: Report from Study
  Country: US (occurrence: US)
  Receive Date: 20161015
  Receipt Date: 20170613
  Transmission Date: 20170830
  Serious: Yes (Hospitalization, Other)
  Sender: FDA-Public Use
  Company Number: US-AMGEN-USASL2016141894

PATIENT
  Age: 64 Year
  Sex: Female

DRUGS (8)
  1. CALCIUM [Concomitant]
     Active Substance: CALCIUM
  2. ENBREL [Suspect]
     Active Substance: ETANERCEPT
     Dosage: UNK
     Route: 065
  3. METHOTREXATE. [Concomitant]
     Active Substance: METHOTREXATE
     Dosage: UNK
  4. ENBREL [Suspect]
     Active Substance: ETANERCEPT
     Dosage: UNK
     Route: 065
  5. ENBREL [Suspect]
     Active Substance: ETANERCEPT
     Dosage: 50 MG, QWK
     Route: 065
  6. PREDNISONE. [Suspect]
     Active Substance: PREDNISONE
     Indication: PRODUCT USED FOR UNKNOWN INDICATION
     Dosage: 5 MG, QD
     Route: 065
  7. ENBREL [Suspect]
     Active Substance: ETANERCEPT
     Indication: RHEUMATOID ARTHRITIS
     Dosage: 25 MG, 2 TIMES/WK
     Route: 065
     Dates: start: 19990909
  8. ENBREL [Suspect]
     Active Substance: ETANERCEPT
     Dosage: UNK
     Route: 065

REACTIONS (25)
  - Loss of personal independence in daily activities [Unknown]
  - Muscle twitching [Unknown]
  - Tooth infection [Unknown]
  - Exostosis [Unknown]
  - Rhinorrhoea [Unknown]
  - Cough [Unknown]
  - Open fracture [Unknown]
  - Hypertension [Unknown]
  - Visual impairment [Unknown]
  - Psoriasis [Recovered/Resolved]
  - Nail disorder [Unknown]
  - Spinal compression fracture [Unknown]
  - Lumbar vertebral fracture [Unknown]
  - Rheumatoid arthritis [Unknown]
  - Erythema [Recovering/Resolving]
  - Pain [Unknown]
  - Drug dose omission [Unknown]
  - Peripheral swelling [Unknown]
  - Spinal fracture [Unknown]
  - Posture abnormal [Unknown]
  - Back pain [Unknown]
  - Papule [Recovering/Resolving]
  - Osteoporosis [Unknown]
  - Skin exfoliation [Unknown]
  - Onychomadesis [Unknown]

NARRATIVE: CASE EVENT DATE: 2016
